FAERS Safety Report 4263975-X (Version None)
Quarter: 2004Q1

REPORT INFORMATION
  Report Type: 
  Country: None (occurrence: None)
  Receive Date: 20040102
  Receipt Date: 20031219
  Transmission Date: 20041129
  Serious: Yes (Death, Hospitalization)
  Sender: FDA-Public Use
  Company Number: 03P-144-0244538-00

PATIENT
  Age: 72 Year
  Sex: Female
  Weight: 72 kg

DRUGS (1)
  1. HUMIRA [Suspect]
     Indication: RHEUMATOID ARTHRITIS
     Dosage: 1 IN 2 WK, SUBCUTANEOUS
     Route: 058
     Dates: start: 20030515, end: 20031204

REACTIONS (16)
  - ANAEMIA [None]
  - ASCITES [None]
  - CATARACT [None]
  - CHOLESTASIS [None]
  - DIVERTICULUM [None]
  - DRUG INTOLERANCE [None]
  - DYSPNOEA [None]
  - GENERAL PHYSICAL HEALTH DETERIORATION [None]
  - HYPERTENSION [None]
  - LOWER GASTROINTESTINAL HAEMORRHAGE [None]
  - LYMPHADENOPATHY [None]
  - MALIGNANT PERITONEAL NEOPLASM [None]
  - METASTASES TO SPLEEN [None]
  - PANCREATIC DISORDER [None]
  - PYREXIA [None]
  - RETINAL DETACHMENT [None]
